FAERS Safety Report 5152359-8 (Version None)
Quarter: 2006Q4

REPORT INFORMATION
  Report Type: 
  Country: None (occurrence: None)
  Receive Date: 20061116
  Receipt Date: 20061101
  Transmission Date: 20070319
  Serious: Yes (Hospitalization)
  Sender: FDA-Public Use
  Company Number: JP-ELI_LILLY_AND_COMPANY-JP200611000727

PATIENT
  Age: 39 Year
  Sex: Male

DRUGS (4)
  1. ZYPREXA [Suspect]
     Indication: DYSTHYMIC DISORDER
     Dosage: UNK, UNKNOWN
     Route: 048
  2. PAXIL [Concomitant]
     Dosage: UNK, UNKNOWN
     Route: 048
  3. LIMAS [Concomitant]
     Dosage: UNK, UNKNOWN
     Route: 048
  4. MEILAX [Concomitant]
     Dosage: UNK, UNKNOWN
     Route: 048

REACTIONS (1)
  - DIABETES INSIPIDUS [None]
